FAERS Safety Report 12360472 (Version 1)
Quarter: 2016Q2

REPORT INFORMATION
  Report Type: Spontaneous
  Country: GB (occurrence: GB)
  Receive Date: 20160512
  Receipt Date: 20160512
  Transmission Date: 20160815
  Serious: Yes (Hospitalization)
  Sender: FDA-Public Use
  Company Number: GB-PFIZER INC-2016251151

PATIENT
  Sex: Male

DRUGS (2)
  1. SYNACTHEN DEPOSITO [Suspect]
     Active Substance: COSYNTROPIN
     Indication: RHEUMATOID ARTHRITIS
     Dosage: UNK
  2. DEPO-MEDRONE [Suspect]
     Active Substance: METHYLPREDNISOLONE
     Indication: RHEUMATOID ARTHRITIS
     Dosage: UNK

REACTIONS (3)
  - Fatigue [Recovered/Resolved]
  - Dizziness [Recovered/Resolved]
  - Hypotension [Recovered/Resolved]
